FAERS Safety Report 26028098 (Version 4)
Quarter: 2025Q4

REPORT INFORMATION
  Report Type: Spontaneous
  Country: US (occurrence: US)
  Receive Date: 20251111
  Receipt Date: 20251208
  Transmission Date: 20260117
  Serious: No
  Sender: PFIZER
  Company Number: US-PFIZER INC-202500215605

PATIENT
  Age: 10 Year
  Sex: Male
  Weight: 22.676 kg

DRUGS (1)
  1. GENOTROPIN [Suspect]
     Active Substance: SOMATROPIN
     Dosage: 0.7 MG, DAILY (THIGH STOMACH OR BUTT EVERY DAY)
     Dates: start: 202508

REACTIONS (2)
  - Device leakage [Unknown]
  - Drug dose omission by device [Unknown]
